FAERS Safety Report 7745229-X (Version None)
Quarter: 2011Q3

REPORT INFORMATION
  Report Type: 
  Country: None (occurrence: None)
  Receive Date: 20110819
  Receipt Date: 20110707
  Transmission Date: 20111222
  Serious: No
  Sender: FDA-Public Use
  Company Number: 036853

PATIENT
  Age: 40 Year
  Sex: Female

DRUGS (1)
  1. LACOSAMIDE [Suspect]
     Dosage: (50 MG BID)

REACTIONS (5)
  - OEDEMA PERIPHERAL [None]
  - ADVERSE DRUG REACTION [None]
  - PYREXIA [None]
  - MOUTH ULCERATION [None]
  - RASH PRURITIC [None]
